FAERS Safety Report 4481023-3 (Version None)
Quarter: 2004Q3

REPORT INFORMATION
  Report Type: 
  Country: None (occurrence: None)
  Receive Date: 20040923
  Receipt Date: 20040601
  Transmission Date: 20050211
  Serious: No
  Sender: FDA-Public Use
  Company Number: USA040668977

PATIENT
  Age: 66 Year
  Sex: Female

DRUGS (4)
  1. FORTEO [Suspect]
     Indication: OSTEOPOROSIS
     Dosage: 20 UG DAY
     Dates: start: 20040527
  2. NOVOLIN 70/30 [Concomitant]
  3. BUMEX [Concomitant]
  4. MAGNESIUM OXIDE [Concomitant]

REACTIONS (3)
  - FEELING ABNORMAL [None]
  - MUSCLE CRAMP [None]
  - VITREOUS FLOATERS [None]
